FAERS Safety Report 9204244 (Version 2)
Quarter: 2013Q2

REPORT INFORMATION
  Report Type: Report from Study
  Country: US (occurrence: US)
  Receive Date: 20130402
  Receipt Date: 20130625
  Transmission Date: 20140414
  Serious: Yes (Death)
  Sender: FDA-Public Use
  Company Number: US-ELI_LILLY_AND_COMPANY-US201109000521

PATIENT
  Age: 80 Year
  Sex: Female
  Weight: 69.8 kg

DRUGS (1)
  1. TERIPARATIDE [Suspect]
     Indication: OSTEOPOROSIS
     Dosage: 20 UG, QD
     Route: 058
     Dates: end: 20130103

REACTIONS (7)
  - Coronary artery disease [Fatal]
  - Parkinson^s disease [Fatal]
  - Malaise [Unknown]
  - Urinary tract disorder [Unknown]
  - Cystitis [Unknown]
  - Pain [Unknown]
  - Fatigue [Unknown]
